FAERS Safety Report 12201190 (Version 1)
Quarter: 2016Q1

REPORT INFORMATION
  Report Type: Spontaneous
  Country: US (occurrence: US)
  Receive Date: 20160322
  Receipt Date: 20160322
  Transmission Date: 20160526
  Serious: No
  Sender: FDA-Public Use
  Company Number: US-SA-2015SA060306

PATIENT
  Age: 50 Year
  Sex: Female

DRUGS (1)
  1. NASACORT ALLERGY 24HR [Suspect]
     Active Substance: TRIAMCINOLONE ACETONIDE
     Indication: MULTIPLE ALLERGIES
     Dosage: 2 SNIFFS PER NOSTRIL
     Route: 045
     Dates: start: 20150427, end: 20150428

REACTIONS (3)
  - Sneezing [Unknown]
  - Nasal congestion [Unknown]
  - Nasal discomfort [Unknown]
